FAERS Safety Report 5254261-X (Version None)
Quarter: 2007Q1

REPORT INFORMATION
  Report Type: 
  Country: None (occurrence: None)
  Receive Date: 20070302
  Receipt Date: 20070228
  Transmission Date: 20070707
  Serious: Yes (Other)
  Sender: FDA-Public Use
  Company Number: US-GLAXOSMITHKLINE-A0641402A

PATIENT
  Age: 82 Year
  Sex: Female

DRUGS (4)
  1. ADVAIR DISKUS 100/50 [Suspect]
     Indication: CHRONIC OBSTRUCTIVE PULMONARY DISEASE
     Route: 055
  2. XOPENEX [Concomitant]
     Route: 055
  3. IPRATROPIUM BROMIDE [Concomitant]
     Route: 055
  4. OXYGEN [Concomitant]

REACTIONS (10)
  - CATARACT [None]
  - DENTAL CARIES [None]
  - DRY SKIN [None]
  - HYPOAESTHESIA [None]
  - INTRAOCULAR PRESSURE INCREASED [None]
  - MUSCULOSKELETAL STIFFNESS [None]
  - OSTEOPOROSIS [None]
  - PAIN IN EXTREMITY [None]
  - PARAESTHESIA [None]
  - PRURITUS [None]
